FAERS Safety Report 7735732-0 (Version None)
Quarter: 2011Q3

REPORT INFORMATION
  Report Type: 
  Country: None (occurrence: None)
  Receive Date: 20110908
  Receipt Date: 20110829
  Transmission Date: 20111222
  Serious: Yes (Hospitalization)
  Sender: FDA-Public Use
  Company Number: US-BIOGENIDEC-2011BI033613

PATIENT
  Age: 55 Year
  Sex: Female

DRUGS (1)
  1. TYSABRI [Suspect]
     Indication: MULTIPLE SCLEROSIS
     Route: 042
     Dates: start: 20110113, end: 20110603

REACTIONS (5)
  - RHABDOMYOLYSIS [None]
  - CONTUSION [None]
  - SWELLING [None]
  - FATIGUE [None]
  - PSYCHOTIC DISORDER [None]
